FAERS Safety Report 9891644 (Version 2)
Quarter: 2014Q1

REPORT INFORMATION
  Report Type: Report from Study
  Country: US (occurrence: US)
  Receive Date: 20140212
  Receipt Date: 20140221
  Transmission Date: 20141002
  Serious: Yes (Death, Hospitalization)
  Sender: FDA-Public Use
  Company Number: US-ACTELION-A-US2014-94560

PATIENT
  Age: 54 Year
  Sex: Female

DRUGS (2)
  1. TRACLEER [Suspect]
     Indication: PULMONARY ARTERIAL HYPERTENSION
     Route: 048
  2. OXYGEN [Concomitant]

REACTIONS (20)
  - Pulmonary embolism [Fatal]
  - Cardiac arrest [Fatal]
  - Acute respiratory failure [Fatal]
  - Renal tubular necrosis [Unknown]
  - Pneumonia [Unknown]
  - Pericardial effusion [Unknown]
  - Cough [Fatal]
  - Malaise [Fatal]
  - Unresponsive to stimuli [Fatal]
  - Pulseless electrical activity [Fatal]
  - Loss of consciousness [Fatal]
  - Respiratory acidosis [Fatal]
  - Hypoxia [Fatal]
  - Cyanosis [Fatal]
  - Brain hypoxia [Fatal]
  - Mental impairment [Fatal]
  - Haemodialysis [Unknown]
  - Atelectasis [Unknown]
  - Bronchial secretion retention [Unknown]
  - Treatment noncompliance [Unknown]
